FAERS Safety Report 18151625 (Version 1)
Quarter: 2020Q3

REPORT INFORMATION
  Report Type: Spontaneous
  Country: DE (occurrence: DE)
  Receive Date: 20200814
  Receipt Date: 20200814
  Transmission Date: 20201103
  Serious: Yes (Other)
  Sender: FDA-Public Use
  Company Number: DE-PFIZER INC-2020304816

PATIENT
  Age: 1 Day
  Sex: Female
  Weight: 2.39 kg

DRUGS (10)
  1. CYTOTEC [Suspect]
     Active Substance: MISOPROSTOL
     Indication: LABOUR INDUCTION
     Dosage: UNK
     Route: 064
     Dates: start: 20200124
  2. SULFASALAZINE. [Suspect]
     Active Substance: SULFASALAZINE
     Dosage: 3000 MG, DAILY (1500?0?1500) ] 2 SEPARATED DOSES
     Route: 064
     Dates: start: 20190424, end: 20200124
  3. PREDNISOLON?RATIOPHARM [PREDNISOLONE] [Suspect]
     Active Substance: PREDNISOLONE
     Indication: JUVENILE IDIOPATHIC ARTHRITIS
     Dosage: 5 MG, 1X/DAY (5?0?0)
     Route: 064
     Dates: start: 20190424, end: 20200124
  4. HUMIRA [Suspect]
     Active Substance: ADALIMUMAB
     Indication: JUVENILE IDIOPATHIC ARTHRITIS
     Dosage: FREQ:2 WK;40 [MG/2WK ]
     Route: 064
     Dates: start: 20190718, end: 20200124
  5. VIGANTOLETTEN [Concomitant]
     Active Substance: CHOLECALCIFEROL
     Indication: OSTEOPOROSIS PROPHYLAXIS
     Dosage: 1000 [IE/D ]
     Route: 064
     Dates: start: 20190424, end: 20200124
  6. LODOTRA [Suspect]
     Active Substance: PREDNISONE
     Indication: JUVENILE IDIOPATHIC ARTHRITIS
     Dosage: 5 MG, 1X/DAY (0?0?5)
     Route: 064
     Dates: start: 20190424, end: 20200124
  7. NAUSEMA [Concomitant]
     Indication: NAUSEA
     Dosage: UNK
     Route: 064
  8. CALCIUM VERLA [Concomitant]
     Active Substance: CALCIUM
     Indication: OSTEOPOROSIS PROPHYLAXIS
     Dosage: 600 [MG/D ]
     Route: 064
     Dates: start: 20190424, end: 20200124
  9. IBUPROFEN. [Concomitant]
     Active Substance: IBUPROFEN
     Indication: JUVENILE IDIOPATHIC ARTHRITIS
     Dosage: 1600 [MG/D (2X800) ] 2 SEPARATED DOSES
     Route: 064
  10. FOLSAN [Concomitant]
     Active Substance: FOLIC ACID
     Indication: PROPHYLAXIS OF NEURAL TUBE DEFECT
     Dosage: 5 [MG/D ]
     Route: 064
     Dates: start: 20190424, end: 20200124

REACTIONS (2)
  - Small for dates baby [Recovering/Resolving]
  - Foetal exposure during pregnancy [Recovering/Resolving]

NARRATIVE: CASE EVENT DATE: 20200124
